FAERS Safety Report 9067624 (Version 1)
Quarter: 2013Q1

REPORT INFORMATION
  Report Type: Spontaneous
  Country: US (occurrence: US)
  Receive Date: 20130128
  Receipt Date: 20130128
  Transmission Date: 20140127
  Serious: Yes (Other)
  Sender: FDA-Public Use
  Company Number: US-GLAXOSMITHKLINE-A1009598A

PATIENT
  Age: 48 Year
  Sex: Female

DRUGS (2)
  1. NICORETTE [Suspect]
     Indication: SMOKING CESSATION THERAPY
     Dosage: 4MG UNKNOWN
     Route: 002
  2. NICORETTE [Suspect]
     Indication: SMOKING CESSATION THERAPY
     Dosage: 2MG UNKNOWN
     Route: 002

REACTIONS (5)
  - Neoplasm malignant [Unknown]
  - Finger amputation [Recovered/Resolved]
  - Impaired healing [Recovered/Resolved]
  - Drug administration error [Unknown]
  - Incorrect dose administered [None]
